FAERS Safety Report 7775274-X (Version None)
Quarter: 2011Q3

REPORT INFORMATION
  Report Type: 
  Country: None (occurrence: None)
  Receive Date: 20110921
  Receipt Date: 20110913
  Transmission Date: 20111222
  Serious: Yes (Hospitalization, Other)
  Sender: FDA-Public Use
  Company Number: 201111195

PATIENT
  Age: 66 Year
  Sex: Female
  Weight: 82.1 kg

DRUGS (10)
  1. DULOXETINE HYDROCHLORIDE [Concomitant]
  2. DIAZEPAM [Concomitant]
  3. TIZANIDINE HCL [Concomitant]
  4. BACLOFEN [Concomitant]
  5. METHENAMINE TAB [Concomitant]
  6. HYDROMORPHONE HCL [Concomitant]
  7. HIPPURATE [Concomitant]
  8. CLONIDINE [Concomitant]
  9. LIORESAL [Suspect]
     Indication: MUSCLE SPASTICITY
     Dosage: 27.2 MCG, DAILY, INTRATHECAL
     Route: 037
  10. GABAPENTIN [Concomitant]

REACTIONS (20)
  - PAIN IN EXTREMITY [None]
  - DEVICE MALFUNCTION [None]
  - ARTHRALGIA [None]
  - MOOD ALTERED [None]
  - INTERVERTEBRAL DISC SPACE NARROWING [None]
  - MUSCULAR WEAKNESS [None]
  - INSOMNIA [None]
  - LUMBAR SPINAL STENOSIS [None]
  - MUSCULOSKELETAL PAIN [None]
  - SKIN LESION [None]
  - ACTIVITIES OF DAILY LIVING IMPAIRED [None]
  - GAIT DISTURBANCE [None]
  - VERTEBRAL COLUMN MASS [None]
  - ARTHROPATHY [None]
  - DEVICE BATTERY ISSUE [None]
  - PIRIFORMIS SYNDROME [None]
  - VERTEBRAL FORAMINAL STENOSIS [None]
  - HYPOAESTHESIA [None]
  - PARAESTHESIA [None]
  - SCOLIOSIS [None]
